FAERS Safety Report 21156651 (Version 2)
Quarter: 2022Q3

REPORT INFORMATION
  Report Type: Spontaneous
  Country: FR (occurrence: FR)
  Receive Date: 20220801
  Receipt Date: 20220808
  Transmission Date: 20221026
  Serious: Yes (Hospitalization)
  Sender: FDA-Public Use
  Company Number: None

PATIENT
  Age: 46 Year
  Sex: Female

DRUGS (1)
  1. OLUMIANT [Suspect]
     Active Substance: BARICITINIB
     Indication: Dermatitis atopic
     Dosage: UNK UNK, UNKNOWN
     Route: 048
     Dates: start: 202203, end: 20220628

REACTIONS (1)
  - Eczema herpeticum [Recovered/Resolved]

NARRATIVE: CASE EVENT DATE: 20220628
